FAERS Safety Report 8922776 (Version 2)
Quarter: 2013Q1

REPORT INFORMATION
  Report Type: Spontaneous
  Country: US (occurrence: None)
  Receive Date: 20121115
  Receipt Date: 20121129
  Transmission Date: 20140127
  Serious: Yes (Other)
  Sender: FDA-Public Use
  Company Number: JPI-P-026050

PATIENT
  Age: 33 Year
  Sex: Female

DRUGS (4)
  1. XYREM (500 MILLIGRAM/MILLILITERS, SOLUTION) (SODIUM OXYBATE) [Suspect]
     Indication: NARCOLEPSY
     Route: 048
     Dates: start: 20090930, end: 2009
  2. MODAFINIL [Concomitant]
  3. CYCLOSPORINE [Concomitant]
  4. ESCITALOPRAM OXALATE [Concomitant]

REACTIONS (6)
  - Ligament rupture [None]
  - Joint injury [None]
  - Corneal disorder [None]
  - Dry eye [None]
  - Vision blurred [None]
  - Weight decreased [None]
